FAERS Safety Report 8290553-8 (Version None)
Quarter: 2012Q2

REPORT INFORMATION
  Report Type: 
  Country: None (occurrence: None)
  Receive Date: 20120417
  Receipt Date: 20111213
  Transmission Date: 20120825
  Serious: No
  Sender: FDA-Public Use
  Company Number: US-ASTRAZENECA-2011SE04441

PATIENT
  Age: 76 Year
  Sex: Female
  Weight: 58.1 kg

DRUGS (2)
  1. NEXIUM [Suspect]
     Indication: GASTROOESOPHAGEAL REFLUX DISEASE
     Dosage: ONCE DAILY
     Route: 048
     Dates: start: 20100712
  2. PRILOSEC OTC [Suspect]
     Route: 048

REACTIONS (7)
  - CONSTIPATION [None]
  - NASAL CONGESTION [None]
  - DRUG DOSE OMISSION [None]
  - GASTROOESOPHAGEAL REFLUX DISEASE [None]
  - NASOPHARYNGITIS [None]
  - ABDOMINAL PAIN [None]
  - DRUG EFFECT DECREASED [None]
